FAERS Safety Report 4268099-3 (Version None)
Quarter: 2004Q1

REPORT INFORMATION
  Report Type: 
  Country: None (occurrence: None)
  Receive Date: 20040109
  Receipt Date: 20030219
  Transmission Date: 20041129
  Serious: Yes (Life-Threatening)
  Sender: FDA-Public Use
  Company Number: US-BRISTOL-MYERS SQUIBB COMPANY-12189882

PATIENT
  Age: 54 Year
  Sex: Female
  Weight: 92 kg

DRUGS (10)
  1. GLUCOVANCE [Suspect]
     Indication: DIABETES MELLITUS
     Dosage: THERAPY DURATION: 1-2 MONTHS
     Route: 048
     Dates: start: 20021101
  2. FUROSEMIDE [Concomitant]
  3. POTASSIUM [Concomitant]
  4. THEOPHYLLINE [Concomitant]
  5. COREG [Concomitant]
  6. VITAMIN D [Concomitant]
  7. CALCIUM [Concomitant]
  8. PERCOCET [Concomitant]
  9. SYNTHROID [Concomitant]
  10. MAGNESIUM [Concomitant]

REACTIONS (4)
  - BLOOD GLUCOSE DECREASED [None]
  - DEPRESSED LEVEL OF CONSCIOUSNESS [None]
  - DYSKINESIA [None]
  - VOMITING [None]
